FAERS Safety Report 20064899 (Version 1)
Quarter: 2021Q4

REPORT INFORMATION
  Report Type: Other
  Country: HR (occurrence: HR)
  Receive Date: 20211112
  Receipt Date: 20211112
  Transmission Date: 20220303
  Serious: Yes (Hospitalization)
  Sender: FDA-Public Use
  Company Number: HR-CELLTRION HEALTHCARE HUNGARY KFT-2021HR014567

PATIENT

DRUGS (6)
  1. RITUXIMAB [Suspect]
     Active Substance: RITUXIMAB
     Indication: Sjogren^s syndrome
     Dosage: LAST APPLICATION OF RTX
     Route: 042
     Dates: start: 202107
  2. RITUXIMAB [Suspect]
     Active Substance: RITUXIMAB
     Indication: Rheumatoid arthritis
     Dosage: 2X1 G I.V, EVERY 6 MONTHS
     Route: 042
  3. RITUXIMAB [Suspect]
     Active Substance: RITUXIMAB
     Dosage: 2X1 G I.V , FIRST DOSE
     Route: 042
  4. METHOTREXATE [Suspect]
     Active Substance: METHOTREXATE
     Indication: Product used for unknown indication
     Dosage: 7.5 MG
     Route: 065
     Dates: start: 2017
  5. METHOTREXATE [Suspect]
     Active Substance: METHOTREXATE
     Dosage: 10 - 15 MG WEEKLY
     Route: 065
  6. PREDNISONE [Suspect]
     Active Substance: PREDNISONE
     Indication: Product used for unknown indication
     Dosage: 5-10 MG
     Route: 065

REACTIONS (4)
  - Off label use [Unknown]
  - Neutropenia [Unknown]
  - Vaccination failure [Unknown]
  - Localised infection [Unknown]

NARRATIVE: CASE EVENT DATE: 20170101
